FAERS Safety Report 21330223 (Version 2)
Quarter: 2023Q1

REPORT INFORMATION
  Report Type: Report from Study
  Country: US (occurrence: US)
  Receive Date: 20220913
  Receipt Date: 20230215
  Transmission Date: 20230417
  Serious: Yes (Hospitalization, Other)
  Sender: FDA-Public Use
  Company Number: US-ABBVIE-22K-163-4458836-00

PATIENT
  Age: 75 Year
  Sex: Female

DRUGS (12)
  1. HUMIRA [Suspect]
     Active Substance: ADALIMUMAB
     Indication: Psoriasis
     Dosage: CITRATE FREE
     Route: 058
     Dates: start: 20181030
  2. HUMIRA [Suspect]
     Active Substance: ADALIMUMAB
     Dosage: CITRATE FREE
     Route: 058
     Dates: start: 20190722
  3. CYMBALTA [Concomitant]
     Active Substance: DULOXETINE HYDROCHLORIDE
     Indication: Fibromyalgia
     Route: 065
  4. ATORVASTATIN [Concomitant]
     Active Substance: ATORVASTATIN
     Indication: Blood cholesterol increased
     Route: 065
  5. ASPIRIN [Concomitant]
     Active Substance: ASPIRIN
     Indication: Anticoagulant therapy
     Route: 065
  6. MINERALS\VITAMINS [Concomitant]
     Active Substance: MINERALS\VITAMINS
     Indication: Supplementation therapy
     Route: 065
  7. FUROSEMIDE [Concomitant]
     Active Substance: FUROSEMIDE
     Indication: Fluid retention
     Route: 065
  8. LISINOPRIL [Concomitant]
     Active Substance: LISINOPRIL
     Indication: Hypertension
     Route: 065
  9. PERFOROMIST [Concomitant]
     Active Substance: FORMOTEROL FUMARATE DIHYDRATE
     Indication: Asthma
     Route: 065
  10. ROPINIROLE [Concomitant]
     Active Substance: ROPINIROLE
     Indication: Restless legs syndrome
     Route: 065
  11. XARELTO [Concomitant]
     Active Substance: RIVAROXABAN
     Indication: Anticoagulant therapy
     Route: 065
  12. METOPROLOL TARTRATE [Concomitant]
     Active Substance: METOPROLOL TARTRATE
     Indication: Hypertension
     Route: 065

REACTIONS (18)
  - Coronary artery bypass [Recovered/Resolved]
  - Musculoskeletal disorder [Unknown]
  - Coma [Recovered/Resolved]
  - Haemorrhage [Recovered/Resolved]
  - Post-traumatic stress disorder [Unknown]
  - Spinal decompression [Recovered/Resolved]
  - Cataract [Unknown]
  - Spinal fusion surgery [Recovered/Resolved]
  - Neck surgery [Recovering/Resolving]
  - Coronavirus infection [Recovered/Resolved]
  - Eyelid ptosis [Recovered/Resolved]
  - Oxygen saturation abnormal [Recovering/Resolving]
  - Gait disturbance [Recovering/Resolving]
  - Gait inability [Unknown]
  - Vision blurred [Not Recovered/Not Resolved]
  - Hypertension [Recovering/Resolving]
  - Dysstasia [Unknown]
  - Pain [Unknown]

NARRATIVE: CASE EVENT DATE: 20190830
